FAERS Safety Report 6639042-4 (Version None)
Quarter: 2010Q1

REPORT INFORMATION
  Report Type: 
  Country: None (occurrence: None)
  Receive Date: 20100317
  Receipt Date: 20100310
  Transmission Date: 20100710
  Serious: Yes (Hospitalization)
  Sender: FDA-Public Use
  Company Number: US-CVT-100134

PATIENT

DRUGS (15)
  1. RANEXA [Suspect]
     Indication: ANGINA PECTORIS
     Dosage: 500 MG, BID
     Route: 048
  2. DILTIAZEM                          /00489701/ [Concomitant]
     Dosage: 240 MG, QD
  3. ZETIA [Concomitant]
  4. ISOSORBIDE DINITRATE [Concomitant]
  5. PRAVASTATIN [Concomitant]
  6. FINASTERIDE [Concomitant]
  7. JANUVIA [Concomitant]
  8. AMITIZA [Concomitant]
  9. NEXIUM [Concomitant]
  10. CITALOPRAM                         /00582601/ [Concomitant]
  11. FOLIC ACID [Concomitant]
  12. FIBERCON [Concomitant]
  13. VITAMIN C [Concomitant]
  14. NEPHRO-VITE [Concomitant]
  15. LACTULOSE [Concomitant]

REACTIONS (14)
  - ATRIOVENTRICULAR BLOCK FIRST DEGREE [None]
  - BLOOD CREATININE INCREASED [None]
  - BLOOD MAGNESIUM DECREASED [None]
  - BLOOD POTASSIUM DECREASED [None]
  - BLOOD UREA INCREASED [None]
  - BUNDLE BRANCH BLOCK LEFT [None]
  - BUNDLE BRANCH BLOCK RIGHT [None]
  - DISEASE RECURRENCE [None]
  - DRUG INTERACTION [None]
  - HAEMODIALYSIS [None]
  - SICK SINUS SYNDROME [None]
  - SYNCOPE [None]
  - TORSADE DE POINTES [None]
  - UNRESPONSIVE TO STIMULI [None]
